FAERS Safety Report 15733298 (Version 1)
Quarter: 2018Q4

REPORT INFORMATION
  Report Type: Spontaneous
  Country: US (occurrence: US)
  Receive Date: 20181218
  Receipt Date: 20181218
  Transmission Date: 20190205
  Serious: No
  Sender: FDA-Public Use
  Company Number: US-BIOGEN-2018BI00670166

PATIENT
  Age: 50 Year
  Sex: Female

DRUGS (1)
  1. PLEGRIDY [Suspect]
     Active Substance: PEGINTERFERON BETA-1A
     Indication: MULTIPLE SCLEROSIS
     Route: 058

REACTIONS (6)
  - Liver function test increased [Unknown]
  - Decreased appetite [Unknown]
  - Faeces pale [Unknown]
  - Influenza like illness [Unknown]
  - Nausea [Unknown]
  - Chromaturia [Unknown]

NARRATIVE: CASE EVENT DATE: 201811
